FAERS Safety Report 23097702 (Version 1)
Quarter: 2023Q4

REPORT INFORMATION
  Report Type: Spontaneous
  Country: US (occurrence: US)
  Receive Date: 20231023
  Receipt Date: 20231023
  Transmission Date: 20240110
  Serious: Yes (Death, Life-Threatening, Hospitalization, Other)
  Sender: FDA-Public Use
  Company Number: US-MLMSERVICE-2023100545902961

PATIENT
  Age: 54 Year
  Sex: Female

DRUGS (3)
  1. QUETIAPINE FUMARATE [Interacting]
     Active Substance: QUETIAPINE FUMARATE
     Indication: Bipolar disorder
  2. HALOPERIDOL [Interacting]
     Active Substance: HALOPERIDOL
     Indication: Bipolar disorder
  3. COCAINE [Interacting]
     Active Substance: COCAINE
     Indication: Product used for unknown indication

REACTIONS (10)
  - Neuroleptic malignant syndrome [Fatal]
  - Haemophagocytic lymphohistiocytosis [Fatal]
  - Hyperferritinaemia [Fatal]
  - Hypertriglyceridaemia [Fatal]
  - Azotaemia [Fatal]
  - Shock [Fatal]
  - Multiple organ dysfunction syndrome [Fatal]
  - Depressed level of consciousness [Fatal]
  - Unresponsive to stimuli [Fatal]
  - Drug interaction [Fatal]
